FAERS Safety Report 4763229-9 (Version None)
Quarter: 2005Q3

REPORT INFORMATION
  Report Type: 
  Country: None (occurrence: None)
  Receive Date: 20050902
  Receipt Date: 20050818
  Transmission Date: 20060218
  Serious: Yes (Other)
  Sender: FDA-Public Use
  Company Number: PHEH2005US09259

PATIENT
  Age: 75 Year
  Sex: Female
  Weight: 68.0396 kg

DRUGS (1)
  1. VISUDYNE [Suspect]
     Indication: MACULAR DEGENERATION
     Dosage: 10.08 MG DAILY IV
     Route: 042
     Dates: start: 20050804, end: 20050804

REACTIONS (2)
  - INJECTION SITE INFECTION [None]
  - INJECTION SITE NECROSIS [None]
